FAERS Safety Report 15944848 (Version 1)
Quarter: 2019Q1

REPORT INFORMATION
  Report Type: Spontaneous
  Country: US (occurrence: US)
  Receive Date: 20190212
  Receipt Date: 20190212
  Transmission Date: 20190417
  Serious: Yes (Disabling)
  Sender: FDA-Public Use
  Company Number: None

PATIENT
  Age: 94 Year
  Sex: Female
  Weight: 74.25 kg

DRUGS (4)
  1. GABAPENTIN. [Concomitant]
     Active Substance: GABAPENTIN
  2. TYLENOL [Concomitant]
     Active Substance: ACETAMINOPHEN
  3. CIPRO [Suspect]
     Active Substance: CIPROFLOXACIN HYDROCHLORIDE
  4. LEVAQUIN [Suspect]
     Active Substance: LEVOFLOXACIN
     Indication: URINARY TRACT INFECTION
     Route: 048

REACTIONS (8)
  - Hypoaesthesia [None]
  - Loss of personal independence in daily activities [None]
  - Muscular weakness [None]
  - Memory impairment [None]
  - Helplessness [None]
  - Paraesthesia [None]
  - Mood swings [None]
  - Dysstasia [None]

NARRATIVE: CASE EVENT DATE: 20150101
